FAERS Safety Report 23866848 (Version 1)
Quarter: 2024Q2

REPORT INFORMATION
  Report Type: Spontaneous
  Country: CH (occurrence: CH)
  Receive Date: 20240517
  Receipt Date: 20240517
  Transmission Date: 20240716
  Serious: Yes (Other)
  Sender: FDA-Public Use
  Company Number: CH-MLMSERVICE-20221227-3996503-1

PATIENT
  Age: 3 Decade
  Sex: Female

DRUGS (5)
  1. ACETAZOLAMIDE [Suspect]
     Active Substance: ACETAZOLAMIDE
     Indication: Glaucoma
     Dosage: UNK
     Route: 065
  2. CYCLOSPORINE [Suspect]
     Active Substance: CYCLOSPORINE
     Indication: Psoriasis
     Dosage: UNK
     Route: 048
  3. TIMOLOL\TRAVOPROST [Suspect]
     Active Substance: TIMOLOL\TRAVOPROST
     Indication: Glaucoma
     Dosage: UNK
     Route: 065
  4. BRIMONIDINE TARTRATE\BRINZOLAMIDE [Suspect]
     Active Substance: BRIMONIDINE TARTRATE\BRINZOLAMIDE
     Indication: Glaucoma
     Dosage: UNK
     Route: 065
  5. CLOBETASOL PROPIONATE [Concomitant]
     Active Substance: CLOBETASOL PROPIONATE
     Indication: Psoriasis
     Dosage: UNK (DOSAGE: SCHEDULED THRICE WEEKLY)
     Route: 061

REACTIONS (2)
  - Drug ineffective [Unknown]
  - Hot flush [Unknown]
